FAERS Safety Report 6199126-4 (Version None)
Quarter: 2009Q2

REPORT INFORMATION
  Report Type: 
  Country: None (occurrence: None)
  Receive Date: 20090522
  Receipt Date: 20090514
  Transmission Date: 20091009
  Serious: Yes (Hospitalization)
  Sender: FDA-Public Use
  Company Number: GB-ROCHE-633379

PATIENT
  Sex: Female

DRUGS (1)
  1. CAPECITABINE [Suspect]
     Indication: NEUROENDOCRINE CARCINOMA
     Dosage: PATIENT WAS WITHDRAWN FROM STUDY.
     Route: 065

REACTIONS (1)
  - INTESTINAL OBSTRUCTION [None]
